FAERS Safety Report 13737936 (Version 2)
Quarter: 2017Q3

REPORT INFORMATION
  Report Type: Spontaneous
  Country: US (occurrence: US)
  Receive Date: 20170710
  Receipt Date: 20170825
  Transmission Date: 20171127
  Serious: No
  Sender: FDA-Public Use
  Company Number: US-009507513-1706USA002875

PATIENT
  Age: 62 Year
  Sex: Female

DRUGS (3)
  1. PROVENTIL [Suspect]
     Active Substance: ALBUTEROL
     Indication: ASTHMA
     Dosage: UNK, AS NEEDED
     Route: 055
  2. PROVENTIL [Suspect]
     Active Substance: ALBUTEROL
     Indication: CHRONIC OBSTRUCTIVE PULMONARY DISEASE
  3. SYMBICORT [Concomitant]
     Active Substance: BUDESONIDE\FORMOTEROL FUMARATE DIHYDRATE

REACTIONS (4)
  - Product use issue [Unknown]
  - Product quality issue [Unknown]
  - Underdose [Unknown]
  - Dyspnoea [Unknown]

NARRATIVE: CASE EVENT DATE: 201705
